FAERS Safety Report 6747546-9 (Version None)
Quarter: 2010Q2

REPORT INFORMATION
  Report Type: 
  Country: None (occurrence: None)
  Receive Date: 20100528
  Receipt Date: 20100519
  Transmission Date: 20101027
  Serious: Yes (Hospitalization)
  Sender: FDA-Public Use
  Company Number: GXKR2010IT05734

PATIENT
  Sex: Female

DRUGS (8)
  1. LOSARTAN POTASSIUM (NGX) [Suspect]
     Indication: HYPERTENSION
     Dosage: 25 MG/DAY
     Route: 048
     Dates: start: 20090101, end: 20100315
  2. AMIODARONE SANDOZ (NGX) [Suspect]
     Indication: HYPERTENSION
     Dosage: 1 DF/DAY
     Route: 048
     Dates: start: 20090101, end: 20100317
  3. FUROSEMIDE (NGX) [Suspect]
     Indication: HYPERTENSION
     Dosage: 100 MG/DAY
     Route: 048
     Dates: start: 20090101, end: 20100316
  4. OMEPRAZOLE [Concomitant]
     Dosage: 20 MG
     Route: 048
  5. ASPIRIN [Concomitant]
     Dosage: 100 MG
     Route: 048
  6. COUMADIN [Concomitant]
     Route: 048
  7. TIOTROPIUM BROMIDE [Concomitant]
  8. FLUTICASONE PROPIONATE W/SALMETEROL [Concomitant]

REACTIONS (2)
  - ORTHOSTATIC HYPOTENSION [None]
  - SYNCOPE [None]
